FAERS Safety Report 25617553 (Version 1)
Quarter: 2025Q3

REPORT INFORMATION
  Report Type: Spontaneous
  Country: GB (occurrence: GB)
  Receive Date: 20250729
  Receipt Date: 20250729
  Transmission Date: 20251020
  Serious: Yes (Other)
  Sender: ALCON
  Company Number: GB-SANTEN OY-2025-GBR-007206

PATIENT
  Age: 8 Decade
  Sex: Female

DRUGS (1)
  1. LATANOPROST\NETARSUDIL MESYLATE [Suspect]
     Active Substance: LATANOPROST\NETARSUDIL MESYLATE
     Indication: Product used for unknown indication
     Dates: start: 2025, end: 2025

REACTIONS (1)
  - Corneal cyst [Recovered/Resolved]

NARRATIVE: CASE EVENT DATE: 20250101
